FAERS Safety Report 7804925-6 (Version None)
Quarter: 2011Q4

REPORT INFORMATION
  Report Type: 
  Country: None (occurrence: None)
  Receive Date: 20111010
  Receipt Date: 20111003
  Transmission Date: 20120403
  Serious: Yes (Hospitalization)
  Sender: FDA-Public Use
  Company Number: US-B.I. PHARMACEUTICALS,INC./RIDGEFIELD-2011-BP-21887BP

PATIENT
  Age: 79 Year
  Sex: Male

DRUGS (5)
  1. PRADAXA [Suspect]
     Dosage: 150 MG
     Dates: start: 20110421
  2. ASACHOL [Concomitant]
  3. PLAVIX [Concomitant]
  4. METRONIDAZOLE [Concomitant]
     Dosage: 750 MG
  5. LOVASTATIN [Concomitant]

REACTIONS (1)
  - RECTAL HAEMORRHAGE [None]
